FAERS Safety Report 7670113-X (Version None)
Quarter: 2011Q3

REPORT INFORMATION
  Report Type: 
  Country: None (occurrence: None)
  Receive Date: 20110808
  Receipt Date: 20110729
  Transmission Date: 20111222
  Serious: Yes (Disabling, Other)
  Sender: FDA-Public Use
  Company Number: US-ALLERGAN-0705484US

PATIENT
  Age: 55 Year
  Sex: Female

DRUGS (3)
  1. BOTOX COSMETIC [Suspect]
     Indication: SKIN WRINKLING
     Dosage: 70 UNITS, SINGLE
     Route: 030
     Dates: start: 20070516, end: 20070516
  2. SYNTHROID [Concomitant]
     Indication: HYPOTHYROIDISM
  3. UNSPECIFIED HORMONES [Suspect]
     Indication: CONTRACEPTION
     Route: 048

REACTIONS (4)
  - WRONG TECHNIQUE IN DRUG USAGE PROCESS [None]
  - BLINDNESS [None]
  - VISUAL FIELD DEFECT [None]
  - RETINAL VEIN OCCLUSION [None]
